FAERS Safety Report 18377812 (Version 1)
Quarter: 2020Q4

REPORT INFORMATION
  Report Type: Spontaneous
  Country: US (occurrence: US)
  Receive Date: 20201013
  Receipt Date: 20201013
  Transmission Date: 20210114
  Serious: Yes (Death, Other)
  Sender: FDA-Public Use
  Company Number: US-SHIRE-US202033137

PATIENT
  Age: 87 Year
  Sex: Male

DRUGS (2)
  1. FIRAZYR [Suspect]
     Active Substance: ICATIBANT ACETATE
     Indication: PRODUCT USED FOR UNKNOWN INDICATION
     Dosage: 30 MGL AS NEEDED, UNK
     Route: 058
     Dates: start: 20160715
  2. FIRAZYR [Suspect]
     Active Substance: ICATIBANT ACETATE
     Indication: PRODUCT USED FOR UNKNOWN INDICATION
     Dosage: 30 MGL AS NEEDED, UNK
     Route: 058
     Dates: start: 20160715

REACTIONS (1)
  - Death [Fatal]

NARRATIVE: CASE EVENT DATE: 20200807
